FAERS Safety Report 7548918-5 (Version None)
Quarter: 2011Q2

REPORT INFORMATION
  Report Type: 
  Country: None (occurrence: None)
  Receive Date: 20110615
  Receipt Date: 20110606
  Transmission Date: 20111010
  Serious: Yes (Hospitalization)
  Sender: FDA-Public Use
  Company Number: ES-TEVA-285904ISR

PATIENT
  Age: 57 Year
  Sex: Male

DRUGS (5)
  1. CAPECITABINE [Suspect]
     Indication: GASTRIC CANCER
     Route: 048
     Dates: start: 20110316, end: 20110429
  2. EPIRUBICIN HYDROCHLORIDE [Suspect]
     Indication: GASTRIC CANCER
     Route: 042
     Dates: start: 20110316, end: 20110429
  3. FENTANYL [Concomitant]
     Dosage: 25 MCG/H
     Route: 062
  4. OMEPRAZOLE [Concomitant]
     Dosage: 20 MILLIGRAM;
     Route: 048
     Dates: start: 20110506
  5. OXALIPLATIN [Suspect]
     Indication: GASTRIC CANCER
     Route: 042
     Dates: start: 20110316, end: 20110429

REACTIONS (1)
  - PANCYTOPENIA [None]
